FAERS Safety Report 15977378 (Version 1)
Quarter: 2019Q1

REPORT INFORMATION
  Report Type: Spontaneous
  Country: US (occurrence: US)
  Receive Date: 20190218
  Receipt Date: 20190218
  Transmission Date: 20190418
  Serious: Yes (Hospitalization)
  Sender: FDA-Public Use
  Company Number: US-MALLINCKRODT-T201805188

PATIENT
  Age: 20 Year
  Sex: Male

DRUGS (1)
  1. H.P. ACTHAR [Suspect]
     Active Substance: CORTICOTROPIN
     Indication: FOCAL SEGMENTAL GLOMERULOSCLEROSIS
     Dosage: 80 UNITS/1 ML, EVERY MONDAY, WEDNESDAY AND FRIDAY
     Route: 065
     Dates: start: 20181116

REACTIONS (2)
  - Acute kidney injury [Unknown]
  - Product storage error [Unknown]
